FAERS Safety Report 12163876 (Version 2)
Quarter: 2017Q1

REPORT INFORMATION
  Report Type: Spontaneous
  Country: DK (occurrence: DK)
  Receive Date: 20160309
  Receipt Date: 20170331
  Transmission Date: 20170428
  Serious: Yes (Other)
  Sender: FDA-Public Use
  Company Number: DK-JNJFOC-20160301137

PATIENT
  Sex: Female

DRUGS (5)
  1. RISPERDAL [Suspect]
     Active Substance: RISPERIDONE
     Indication: BIPOLAR DISORDER
     Dosage: 2-4 MG
     Route: 065
     Dates: start: 20130107, end: 20130403
  2. LITAREX [Suspect]
     Active Substance: LITHIUM CITRATE
     Indication: DEPRESSION
     Dosage: DOSE = 210
     Route: 065
     Dates: start: 2013
  3. QUETIAPINE FUMARATE. [Suspect]
     Active Substance: QUETIAPINE FUMARATE
     Indication: DEPRESSION
     Dosage: 200-600 MG
     Route: 065
     Dates: start: 20110224, end: 20140611
  4. TRUXAL [Suspect]
     Active Substance: CHLORPROTHIXENE
     Indication: PRODUCT USED FOR UNKNOWN INDICATION
     Dosage: DOSE = 50-150 MG X 3
     Route: 065
     Dates: start: 20100415, end: 20150902
  5. ABILIFY [Concomitant]
     Active Substance: ARIPIPRAZOLE
     Dosage: DOSE = 15
     Route: 065
     Dates: start: 20150902, end: 20151120

REACTIONS (6)
  - Cerebral thrombosis [Recovered/Resolved with Sequelae]
  - Axillary mass [Unknown]
  - Dental caries [Not Recovered/Not Resolved]
  - Oral pain [Not Recovered/Not Resolved]
  - Hypoaesthesia [Not Recovered/Not Resolved]
  - Gingivitis [Not Recovered/Not Resolved]

NARRATIVE: CASE EVENT DATE: 2013
